FAERS Safety Report 12565649 (Version 1)
Quarter: 2016Q3

REPORT INFORMATION
  Report Type: Spontaneous
  Country: BR (occurrence: BR)
  Receive Date: 20160718
  Receipt Date: 20160718
  Transmission Date: 20161109
  Serious: Yes (Hospitalization)
  Sender: FDA-Public Use
  Company Number: BR-TORRENT-00003489

PATIENT
  Age: 49 Year
  Sex: Female
  Weight: 93 kg

DRUGS (5)
  1. OMEPRAZOLE. [Concomitant]
     Active Substance: OMEPRAZOLE
     Indication: DYSGEUSIA
     Dosage: OMEPRAZOLE 25 MG TWICE DAILY/ ORAL
     Route: 048
     Dates: start: 2008
  2. RIVOTRIL [Concomitant]
     Active Substance: CLONAZEPAM
     Indication: INSOMNIA
     Dosage: DOSE NUMBER IS UNKNOWN/ TWICE DAILY/ ORAL
     Route: 048
     Dates: start: 2008
  3. SERENATA [Suspect]
     Active Substance: SERTRALINE HYDROCHLORIDE
     Indication: DEPRESSION
     Dosage: SERENATA 50 MG TWICE DAILY/ ORAL
     Route: 048
     Dates: start: 2008, end: 201605
  4. AAS [Concomitant]
     Active Substance: ASPIRIN
     Indication: ANTIPLATELET THERAPY
     Dosage: ONCE DAILY/ OAL
     Route: 048
     Dates: start: 2008
  5. HYDROCHLOROTHIAZIDE. [Concomitant]
     Active Substance: HYDROCHLOROTHIAZIDE
     Indication: DIURETIC THERAPY
     Dosage: ONCE DAILY/ ORAL
     Route: 048
     Dates: start: 2008

REACTIONS (6)
  - Peripheral swelling [Unknown]
  - Breath odour [Unknown]
  - Hepatic pain [Unknown]
  - Dysgeusia [Not Recovered/Not Resolved]
  - Weight decreased [Not Recovered/Not Resolved]
  - Blood uric acid abnormal [Unknown]

NARRATIVE: CASE EVENT DATE: 2008
